FAERS Safety Report 8235490-X (Version None)
Quarter: 2012Q1

REPORT INFORMATION
  Report Type: 
  Country: None (occurrence: None)
  Receive Date: 20120326
  Receipt Date: 20120316
  Transmission Date: 20120608
  Serious: Yes (Other)
  Sender: FDA-Public Use
  Company Number: CA-ROCHE-GNE320314

PATIENT
  Sex: Female

DRUGS (2)
  1. XOLAIR [Suspect]
     Dates: start: 20110610
  2. XOLAIR [Suspect]
     Indication: ASTHMA
     Dosage: 375 MG, Q2W
     Route: 058
     Dates: start: 20080528

REACTIONS (13)
  - BRONCHITIS [None]
  - HYPERSENSITIVITY [None]
  - FATIGUE [None]
  - SPUTUM DISCOLOURED [None]
  - PHARYNGITIS [None]
  - ANAPHYLACTIC SHOCK [None]
  - INFLUENZA [None]
  - NASOPHARYNGITIS [None]
  - HERPES SIMPLEX [None]
  - PAIN IN EXTREMITY [None]
  - RHINORRHOEA [None]
  - COUGH [None]
  - RESPIRATORY TRACT CONGESTION [None]
